FAERS Safety Report 13359481 (Version 1)
Quarter: 2017Q1

REPORT INFORMATION
  Report Type: Report from Study
  Country: PL (occurrence: PL)
  Receive Date: 20170322
  Receipt Date: 20170322
  Transmission Date: 20170429
  Serious: Yes (Hospitalization)
  Sender: FDA-Public Use
  Company Number: PL-CELLTRION HEALTHCARE HUNGARY KFT-2017PL000028

PATIENT

DRUGS (19)
  1. REMSIMA [Suspect]
     Active Substance: INFLIXIMAB
     Dosage: 350 UNK, UNK
     Dates: start: 20151231, end: 20151231
  2. AZATHIOPRINE. [Concomitant]
     Active Substance: AZATHIOPRINE
     Indication: CROHN^S DISEASE
     Dosage: 150 MG, DAILY
     Route: 048
     Dates: start: 20130722, end: 20161025
  3. CLEXANE [Concomitant]
     Active Substance: ENOXAPARIN SODIUM
     Indication: PROPHYLAXIS
     Dosage: 80 MG, DAILY
     Route: 058
     Dates: start: 20110921
  4. MIXTARD HUMAN 70/30 [Concomitant]
     Active Substance: INSULIN HUMAN
     Indication: DIABETES MELLITUS
     Dosage: DEPENDING ON THE LEVEL OF GLYCEMIC
     Route: 058
     Dates: start: 20121019
  5. METOTREXATE [Concomitant]
     Active Substance: METHOTREXATE SODIUM
     Indication: CROHN^S DISEASE
     Dosage: 25 MG, 1/WEEK
     Route: 058
     Dates: start: 20161109
  6. REMSIMA [Suspect]
     Active Substance: INFLIXIMAB
     Dosage: 350 UNK, UNK
     Dates: start: 20151204, end: 20151204
  7. REMSIMA [Suspect]
     Active Substance: INFLIXIMAB
     Dosage: 300 UNK, UNK
     Dates: start: 20160812, end: 20160812
  8. REMSIMA [Suspect]
     Active Substance: INFLIXIMAB
     Dosage: 355 UNK, UNK
     Dates: start: 20160421, end: 20160421
  9. ACTRAPID [Concomitant]
     Active Substance: INSULIN HUMAN
     Indication: DIABETES MELLITUS
     Dosage: UNK, ONCE A DAY
     Route: 058
     Dates: start: 20121019
  10. REMSIMA [Suspect]
     Active Substance: INFLIXIMAB
     Indication: CROHN^S DISEASE
     Dosage: 350 UNK, UNK
     Dates: start: 20151119, end: 20151119
  11. REMSIMA [Suspect]
     Active Substance: INFLIXIMAB
     Dosage: 350 UNK, UNK
     Dates: start: 20160225, end: 20160225
  12. REMSIMA [Suspect]
     Active Substance: INFLIXIMAB
     Dosage: 300 UNK, UNK
     Dates: start: 20161007, end: 20161007
  13. RAMIPRIL. [Concomitant]
     Active Substance: RAMIPRIL
     Indication: HYPERTENSION
     Dosage: 10 MG, DAILY
     Route: 048
     Dates: start: 20130101
  14. ACTRAPID [Concomitant]
     Active Substance: INSULIN HUMAN
     Indication: DIABETES MELLITUS
     Dosage: UNK U, DAILY
     Route: 058
     Dates: start: 20121019
  15. VITAMIN B12 [Concomitant]
     Active Substance: CYANOCOBALAMIN
     Indication: PROPHYLAXIS
     Dosage: 1000 MICROGRAM,ONCE A MONTH
     Route: 030
     Dates: start: 20161108
  16. ZIRID [Concomitant]
     Indication: IMPAIRED GASTRIC EMPTYING
     Dosage: 50 MG, TID
     Route: 048
     Dates: start: 20161025
  17. REMSIMA [Suspect]
     Active Substance: INFLIXIMAB
     Dosage: 330 UNK, UNK
     Dates: start: 20160617, end: 20160617
  18. ACIDUM FOLICUM [Concomitant]
     Active Substance: FOLIC ACID
     Indication: PROPHYLAXIS
     Dosage: 15 MG, 1/WEEK
     Route: 048
     Dates: start: 20161109
  19. MESALAZINE [Concomitant]
     Active Substance: MESALAMINE
     Indication: CROHN^S DISEASE
     Dosage: 1000 MG, TID
     Route: 048
     Dates: start: 20121019

REACTIONS (1)
  - Impaired gastric emptying [Recovered/Resolved]

NARRATIVE: CASE EVENT DATE: 20161025
